FAERS Safety Report 9796962 (Version 1)
Quarter: 2014Q1

REPORT INFORMATION
  Report Type: Spontaneous
  Country: US (occurrence: US)
  Receive Date: 20140105
  Receipt Date: 20140105
  Transmission Date: 20141002
  Serious: No
  Sender: FDA-Public Use
  Company Number: US-009507513-1401USA000827

PATIENT
  Age: 28 Year
  Sex: Female

DRUGS (2)
  1. CLARITIN-D-24 [Suspect]
     Indication: ILL-DEFINED DISORDER
     Dosage: UNK, UNKNOWN
     Route: 048
  2. CLARITIN-D-24 [Suspect]
     Indication: SINUS HEADACHE

REACTIONS (2)
  - Feeling abnormal [Unknown]
  - Somnolence [Unknown]
